FAERS Safety Report 25429097 (Version 1)
Quarter: 2025Q2

REPORT INFORMATION
  Report Type: Other
  Country: CA (occurrence: CA)
  Receive Date: 20250612
  Receipt Date: 20250612
  Transmission Date: 20250717
  Serious: Yes (Life-Threatening, Hospitalization, Other)
  Sender: PFIZER
  Company Number: CA-PFIZER INC-202500119783

PATIENT
  Age: 15 Year
  Sex: Female

DRUGS (21)
  1. TIGECYCLINE [Suspect]
     Active Substance: TIGECYCLINE
     Indication: Burkholderia cepacia complex infection
     Dosage: 100 MG, 1X/DAY(POWDER FOR SOLUTION)
     Route: 042
  2. TIGECYCLINE [Suspect]
     Active Substance: TIGECYCLINE
     Indication: Bacterial disease carrier
  3. TIGECYCLINE [Suspect]
     Active Substance: TIGECYCLINE
     Indication: Bacterial disease carrier
     Route: 042
  4. TIGECYCLINE [Suspect]
     Active Substance: TIGECYCLINE
     Indication: Burkholderia cepacia complex infection
  5. MEROPENEM [Suspect]
     Active Substance: MEROPENEM
     Indication: Burkholderia cepacia complex infection
     Dosage: 120.0 MG/KG, 1 EVERY 1 DAYS
  6. MEROPENEM [Suspect]
     Active Substance: MEROPENEM
     Indication: Bacterial disease carrier
  7. MEROPENEM [Suspect]
     Active Substance: MEROPENEM
     Indication: Burkholderia cepacia complex infection
     Route: 042
  8. MEROPENEM [Suspect]
     Active Substance: MEROPENEM
     Indication: Bacterial disease carrier
  9. CHLORAMPHENICOL [Suspect]
     Active Substance: CHLORAMPHENICOL
     Indication: Burkholderia cepacia complex infection
     Dosage: 70.0 MG/KG, 1 EVERY 1 DAYS
     Route: 042
  10. SULFAMETHOXAZOLE\TRIMETHOPRIM [Suspect]
     Active Substance: SULFAMETHOXAZOLE\TRIMETHOPRIM
     Indication: Burkholderia cepacia complex infection
     Dosage: 20.0 MG/KG, 1 EVERY 1 DAYS
     Route: 042
  11. ALPHA-TOCOPHEROL [Concomitant]
     Active Substance: .ALPHA.-TOCOPHEROL
  12. AZTREONAM [Concomitant]
     Active Substance: AZTREONAM
     Indication: Bacterial disease carrier
     Route: 042
  13. CEFTAZIDIME [Concomitant]
     Active Substance: CEFTAZIDIME
     Indication: Bacterial disease carrier
     Route: 042
  14. DORNASE ALFA [Concomitant]
     Active Substance: DORNASE ALFA
  15. LIPASE [Concomitant]
     Active Substance: LIPASE
  16. MENADIONE [Concomitant]
     Active Substance: MENADIONE
  17. METOCLOPRAMIDE [Concomitant]
     Active Substance: METOCLOPRAMIDE
     Route: 048
  18. SACCHAROMYCES CEREVISIAE [Concomitant]
     Active Substance: SACCHAROMYCES CEREVISIAE
  19. TOBRAMYCIN [Concomitant]
     Active Substance: TOBRAMYCIN
  20. RETINOL [Concomitant]
     Active Substance: RETINOL
  21. VITAMIN D NOS [Concomitant]
     Active Substance: CHOLECALCIFEROL\ERGOCALCIFEROL

REACTIONS (5)
  - Acute respiratory failure [Recovered/Resolved]
  - Drug ineffective [Recovered/Resolved]
  - Hyperkalaemia [Recovered/Resolved]
  - Lactic acidosis [Recovered/Resolved]
  - Off label use [Unknown]
